FAERS Safety Report 12548005 (Version 1)
Quarter: 2016Q3

REPORT INFORMATION
  Report Type: Spontaneous
  Country: US (occurrence: None)
  Receive Date: 20160711
  Receipt Date: 20160711
  Transmission Date: 20161109
  Serious: Yes (Other)
  Sender: FDA-Public Use
  Company Number: None

PATIENT
  Age: 75 Year
  Sex: Female
  Weight: 77.11 kg

DRUGS (20)
  1. EVISTA [Concomitant]
     Active Substance: RALOXIFENE HYDROCHLORIDE
  2. CALCIUM SUPPLEMENTS [Concomitant]
     Active Substance: CALCIUM
  3. VITAMIN B12 [Concomitant]
     Active Substance: CYANOCOBALAMIN
  4. SCHIFF DIGESTIVE ADVANTAGE [Concomitant]
  5. HYDROCODONE [Concomitant]
     Active Substance: HYDROCODONE
  6. MAGNESIUM MALATE [Concomitant]
  7. HYALURONIC ACID [Concomitant]
     Active Substance: HYALURONIC ACID
  8. ZINC [Concomitant]
     Active Substance: ZINC\ZINC CHLORIDE
  9. XANAX [Concomitant]
     Active Substance: ALPRAZOLAM
  10. VITAMIN D3 [Concomitant]
     Active Substance: CHOLECALCIFEROL
  11. IRON [Concomitant]
     Active Substance: IRON
  12. RIBOSE [Concomitant]
     Active Substance: DIETARY SUPPLEMENT
  13. SAVELLA [Suspect]
     Active Substance: MILNACIPRAN HYDROCHLORIDE
     Indication: FIBROMYALGIA
     Dosage: 60 TABLET(S) ONCE A DAY TAKEN BY MOUTH
     Route: 048
     Dates: start: 20160527, end: 20160613
  14. OSTEO-BIFLEX [Concomitant]
  15. CPAP [Concomitant]
     Active Substance: DEVICE
  16. VITAMIN C [Concomitant]
     Active Substance: ASCORBIC ACID
  17. NORDITROPIN (HGH) [Concomitant]
  18. CYMBALTA [Concomitant]
     Active Substance: DULOXETINE HYDROCHLORIDE
  19. ACYCLOVIR. [Concomitant]
     Active Substance: ACYCLOVIR
  20. PHILLIPS FIBER [Concomitant]

REACTIONS (13)
  - Fatigue [None]
  - Confusional state [None]
  - Delirium [None]
  - Coordination abnormal [None]
  - Dizziness [None]
  - Presyncope [None]
  - Tremor [None]
  - Nausea [None]
  - Blood pressure increased [None]
  - Hyperhidrosis [None]
  - Therapy change [None]
  - Drug effect decreased [None]
  - Constipation [None]

NARRATIVE: CASE EVENT DATE: 20160527
